FAERS Safety Report 9467444 (Version 2)
Quarter: 2013Q3

REPORT INFORMATION
  Report Type: Report from Study
  Country: US (occurrence: US)
  Receive Date: 20130821
  Receipt Date: 20130918
  Transmission Date: 20140515
  Serious: Yes (Other)
  Sender: FDA-Public Use
  Company Number: PHEH2013US017578

PATIENT
  Sex: Female

DRUGS (1)
  1. TOBI [Suspect]
     Indication: PNEUMONIA PSEUDOMONAL
     Dosage: BID (28 DAYS IN ON, 28 DAYS OFF)
     Dates: start: 20130627

REACTIONS (1)
  - Depression [Not Recovered/Not Resolved]
